FAERS Safety Report 9280153 (Version 1)
Quarter: 2013Q2

REPORT INFORMATION
  Report Type: Spontaneous
  Country: US (occurrence: None)
  Receive Date: 20130507
  Receipt Date: 20130507
  Transmission Date: 20140414
  Serious: Yes (Hospitalization)
  Sender: FDA-Public Use
  Company Number: None

PATIENT
  Age: 54 Year
  Sex: Female
  Weight: 58.97 kg

DRUGS (2)
  1. ELESTRIN [Suspect]
     Indication: MENOPAUSE
     Dosage: 0.06 %
     Route: 061
     Dates: start: 20130104, end: 20130304
  2. QUASENSE [Suspect]
     Indication: CONTRACEPTION
     Dosage: 0.15MG 10.03
     Route: 048
     Dates: start: 2005, end: 2013

REACTIONS (1)
  - Cerebrovascular accident [None]
